FAERS Safety Report 9666575 (Version 2)
Quarter: 2013Q4

REPORT INFORMATION
  Report Type: Report from Study
  Country: MX (occurrence: MX)
  Receive Date: 20131104
  Receipt Date: 20131209
  Transmission Date: 20140711
  Serious: Yes (Other)
  Sender: FDA-Public Use
  Company Number: PHHY2013MX124691

PATIENT
  Age: 50 Year
  Sex: Male

DRUGS (4)
  1. CO-DIOVAN [Suspect]
     Indication: HYPERTENSION
     Dosage: 1 TABLET (160MG VALSARTAN/25MG HCT), DAILY
     Route: 048
  2. CO-DIOVAN [Suspect]
     Dosage: 0.5 TABLET (160MG VALSARTAN/25MG HCT), DAILY
     Route: 048
  3. GALVUS MET [Concomitant]
     Dosage: 1 DF (500MG METFORMIN/50MG VILDAGLIPTIN), UNK
  4. HUMALOG MIX [Concomitant]
     Indication: DIABETES MELLITUS
     Dosage: 90 UKN, UNK

REACTIONS (9)
  - Neoplasm malignant [Not Recovered/Not Resolved]
  - Overweight [Not Recovered/Not Resolved]
  - Hodgkin^s disease [Recovered/Resolved]
  - Weight decreased [Recovered/Resolved]
  - Underweight [Recovered/Resolved]
  - Weight increased [Not Recovered/Not Resolved]
  - Pancreatic disorder [Not Recovered/Not Resolved]
  - Blood pressure decreased [Recovered/Resolved]
  - Wrong technique in drug usage process [Recovered/Resolved]
